FAERS Safety Report 12603087 (Version 3)
Quarter: 2017Q2

REPORT INFORMATION
  Report Type: Report from Study
  Country: FR (occurrence: FR)
  Receive Date: 20160728
  Receipt Date: 20170412
  Transmission Date: 20170830
  Serious: Yes (Hospitalization, Other)
  Sender: FDA-Public Use
  Company Number: FR-SEATTLE GENETICS-2016SGN00776

PATIENT

DRUGS (37)
  1. PRIMPERAN [Concomitant]
     Active Substance: METOCLOPRAMIDE HYDROCHLORIDE
     Route: 065
  2. POLARAMINE [Concomitant]
     Active Substance: DEXCHLORPHENIRAMINE MALEATE
     Indication: ANTIALLERGIC THERAPY
     Route: 065
  3. INEXIUM                            /01479302/ [Concomitant]
     Active Substance: ESOMEPRAZOLE MAGNESIUM
     Dosage: UNK
     Route: 048
  4. TRAMADOL. [Concomitant]
     Active Substance: TRAMADOL
     Dosage: UNK UNK, QD
     Route: 048
  5. SOLU-MEDROL [Concomitant]
     Active Substance: METHYLPREDNISOLONE SODIUM SUCCINATE
     Indication: ANTIALLERGIC THERAPY
     Dosage: 120 MG, UNK
  6. BRENTUXIMAB VEDOTIN [Suspect]
     Active Substance: BRENTUXIMAB VEDOTIN
     Dosage: 95 MG, UNK
     Route: 042
     Dates: start: 20160318
  7. LANZOR [Concomitant]
     Active Substance: LANSOPRAZOLE
     Indication: BLOOD PRESSURE MEASUREMENT
     Dosage: UNK
  8. FORLAX [Concomitant]
     Active Substance: POLYETHYLENE GLYCOL 4000
     Route: 065
  9. ZELITREX [Concomitant]
     Active Substance: VALACYCLOVIR HYDROCHLORIDE
     Indication: PROPHYLAXIS
     Dosage: UNK
  10. MOVICOL [Concomitant]
     Active Substance: POLYETHYLENE GLYCOL 3350\POTASSIUM CHLORIDE\SODIUM BICARBONATE\SODIUM CHLORIDE
  11. SETOFILM [Concomitant]
     Active Substance: ONDANSETRON
     Route: 065
  12. LEVOTHYROX [Concomitant]
     Active Substance: LEVOTHYROXINE
     Indication: THYROIDECTOMY
     Dosage: UNK
  13. TRAMADOL. [Concomitant]
     Active Substance: TRAMADOL
     Indication: PAIN
     Dosage: UNK
  14. TRAMADOL. [Concomitant]
     Active Substance: TRAMADOL
     Dosage: UNK UNK, QD
     Route: 048
  15. XOLAAM [Concomitant]
     Active Substance: ALUMINUM HYDROXIDE\MAGNESIUM HYDROXIDE
     Route: 065
  16. FORLAX [Concomitant]
     Active Substance: POLYETHYLENE GLYCOL 4000
     Route: 065
  17. LEVOTHYROX [Concomitant]
     Active Substance: LEVOTHYROXINE
     Dosage: UNK
  18. TRAMADOL. [Concomitant]
     Active Substance: TRAMADOL
     Route: 048
  19. ALFUZOSINE [Concomitant]
     Active Substance: ALFUZOSIN HYDROCHLORIDE
     Dosage: UNK
     Route: 048
  20. PRIMPERAN [Concomitant]
     Active Substance: METOCLOPRAMIDE HYDROCHLORIDE
     Route: 065
  21. LEVOTHYROX [Concomitant]
     Active Substance: LEVOTHYROXINE
     Dosage: 150 ?G, UNK
     Route: 048
  22. LEVOTHYROX [Concomitant]
     Active Substance: LEVOTHYROXINE
     Dosage: 150 ?G, UNK
     Route: 048
  23. VOLTAREN [Concomitant]
     Active Substance: DICLOFENAC SODIUM
     Dosage: UNK
     Route: 065
     Dates: start: 20160201
  24. SERESTA [Concomitant]
     Active Substance: OXAZEPAM
     Indication: INSOMNIA
     Dosage: UNK
     Route: 048
  25. LANZOR [Concomitant]
     Active Substance: LANSOPRAZOLE
     Indication: PROPHYLAXIS
     Dosage: UNK
  26. LANZOR [Concomitant]
     Active Substance: LANSOPRAZOLE
     Dosage: 30 MG, UNK
     Route: 048
  27. LEVOTHYROX [Concomitant]
     Active Substance: LEVOTHYROXINE
     Dosage: 150 ?G, UNK
     Route: 048
  28. EPREX [Concomitant]
     Active Substance: ERYTHROPOIETIN
     Indication: HAEMOGLOBIN DECREASED
     Dosage: UNK, 1/WEEK
  29. PERFALGAN [Concomitant]
     Active Substance: ACETAMINOPHEN
     Indication: ANTIALLERGIC THERAPY
     Dosage: 1 G, UNK
  30. BRENTUXIMAB VEDOTIN [Suspect]
     Active Substance: BRENTUXIMAB VEDOTIN
     Indication: HODGKIN^S DISEASE
     Dosage: 145 MG, UNK
     Route: 065
     Dates: start: 20160125
  31. BRENTUXIMAB VEDOTIN [Suspect]
     Active Substance: BRENTUXIMAB VEDOTIN
     Dosage: 65 MG, UNK
     Dates: start: 20160520, end: 20160520
  32. LANZOR [Concomitant]
     Active Substance: LANSOPRAZOLE
     Dosage: 30 MG, UNK
     Route: 048
  33. PRIMPERAN [Concomitant]
     Active Substance: METOCLOPRAMIDE HYDROCHLORIDE
     Indication: NAUSEA
     Dosage: UNK
  34. FORLAX [Concomitant]
     Active Substance: POLYETHYLENE GLYCOL 4000
     Indication: CONSTIPATION
     Dosage: UNK
  35. VOLTAREN [Concomitant]
     Active Substance: DICLOFENAC SODIUM
     Indication: PAIN
     Dosage: UNK
     Dates: end: 20160201
  36. TAMSULOSIN [Concomitant]
     Active Substance: TAMSULOSIN
     Dosage: 0.4 MG, UNK
  37. IXPRIM [Concomitant]
     Active Substance: ACETAMINOPHEN\TRAMADOL HYDROCHLORIDE
     Route: 065

REACTIONS (20)
  - Lung disorder [Recovered/Resolved]
  - Dehydration [Recovered/Resolved]
  - Weight decreased [Not Recovered/Not Resolved]
  - Fatigue [Recovered/Resolved]
  - Fatigue [Recovered/Resolved]
  - Vomiting [Unknown]
  - Vomiting [Recovered/Resolved]
  - Malnutrition [Recovered/Resolved]
  - Decreased appetite [Recovering/Resolving]
  - Infection [Recovered/Resolved]
  - Sepsis [Recovered/Resolved]
  - Acute kidney injury [Unknown]
  - Dyspnoea [Unknown]
  - Asthenia [Unknown]
  - Urinary retention [Unknown]
  - Asthenia [Recovered/Resolved]
  - Decreased appetite [Unknown]
  - Hypersensitivity [Recovered/Resolved]
  - Nausea [Recovered/Resolved]
  - Toxicity to various agents [Unknown]

NARRATIVE: CASE EVENT DATE: 20160215
